FAERS Safety Report 5388510-4 (Version None)
Quarter: 2007Q3

REPORT INFORMATION
  Report Type: 
  Country: None (occurrence: None)
  Receive Date: 20070716
  Receipt Date: 20060720
  Transmission Date: 20080115
  Serious: No
  Sender: FDA-Public Use
  Company Number: US-BRISTOL-MYERS SQUIBB COMPANY-13469978

PATIENT
  Age: 71 Year
  Sex: Male

DRUGS (10)
  1. SINEMET CR [Suspect]
     Indication: PARKINSON'S DISEASE
     Dates: start: 20030101
  2. IPRATROPIUM BROMIDE [Concomitant]
  3. ALBUTEROL [Concomitant]
  4. SIMVASTATIN [Concomitant]
  5. TRAMADOL HCL + ACETAMINOPHEN [Concomitant]
  6. COUMADIN [Concomitant]
  7. PANTOPRAZOLE SODIUM [Concomitant]
  8. ASPIRIN [Concomitant]
  9. LEXAPRO [Concomitant]
  10. LISINOPRIL [Concomitant]

REACTIONS (1)
  - DRUG INEFFECTIVE [None]
